FAERS Safety Report 8574531-7 (Version None)
Quarter: 2012Q3

REPORT INFORMATION
  Report Type: 
  Country: None (occurrence: None)
  Receive Date: 20120806
  Receipt Date: 20120727
  Transmission Date: 20120928
  Serious: No
  Sender: FDA-Public Use
  Company Number: US-009507513-1207USA011862

PATIENT

DRUGS (5)
  1. FLUTICASONE PROPIONATE [Suspect]
  2. SPIRIVA [Suspect]
  3. DULERA [Suspect]
  4. ASMANEX TWISTHALER [Concomitant]
  5. SYMBICORT [Concomitant]

REACTIONS (1)
  - DRUG INEFFECTIVE [None]
